FAERS Safety Report 7994579-0 (Version None)
Quarter: 2011Q4

REPORT INFORMATION
  Report Type: 
  Country: None (occurrence: None)
  Receive Date: 20111220
  Receipt Date: 20111216
  Transmission Date: 20120403
  Serious: Yes (Other)
  Sender: FDA-Public Use
  Company Number: JP-PFIZER INC-2011307105

PATIENT
  Sex: Female

DRUGS (3)
  1. RISPERDAL CONSTA [Concomitant]
     Dosage: UNK, ONCE EVERY SECOND WEEK
     Route: 030
  2. VARENICLINE TARTRATE [Suspect]
     Dosage: 0.5 MG, 1X/DAY
     Route: 048
     Dates: start: 20111212
  3. LEXOTAN [Suspect]
     Dosage: UNK
     Route: 048

REACTIONS (11)
  - MALAISE [None]
  - NAUSEA [None]
  - SOMNOLENCE [None]
  - DIARRHOEA [None]
  - IRRITABILITY [None]
  - DYSPNOEA [None]
  - THIRST [None]
  - DEPRESSED LEVEL OF CONSCIOUSNESS [None]
  - HYPOAESTHESIA [None]
  - POLYDIPSIA [None]
  - OVERDOSE [None]
